FAERS Safety Report 15264611 (Version 2)
Quarter: 2018Q3

REPORT INFORMATION
  Report Type: Report from Study
  Country: CO (occurrence: CO)
  Receive Date: 20180810
  Receipt Date: 20180917
  Transmission Date: 20181010
  Serious: Yes (Other)
  Sender: FDA-Public Use
  Company Number: PHHY2018CO068480

PATIENT
  Sex: Female
  Weight: 74 kg

DRUGS (2)
  1. REVOLADE [Suspect]
     Active Substance: ELTROMBOPAG
     Indication: IMMUNE THROMBOCYTOPENIC PURPURA
     Dosage: 50 MG, QD
     Route: 048
  2. REVOLADE [Suspect]
     Active Substance: ELTROMBOPAG
     Dosage: UNK

REACTIONS (4)
  - Chronic tonsillitis [Recovered/Resolved]
  - Nephrolithiasis [Unknown]
  - Inflammation [Unknown]
  - Renal pain [Unknown]
